FAERS Safety Report 15903076 (Version 1)
Quarter: 2019Q1

REPORT INFORMATION
  Report Type: Spontaneous
  Country: US (occurrence: US)
  Receive Date: 20190202
  Receipt Date: 20190202
  Transmission Date: 20190417
  Serious: No
  Sender: FDA-Public Use
  Company Number: PHEH2019US004545

PATIENT
  Age: 5 Year
  Sex: Male

DRUGS (1)
  1. AMOXICILLIN + CLAVULANATE POTASSIUM [Suspect]
     Active Substance: AMOXICILLIN\CLAVULANATE POTASSIUM
     Indication: BACTERIAL INFECTION
     Dosage: 1080 MG, BID
     Route: 048
     Dates: start: 20190125

REACTIONS (3)
  - Diarrhoea [Recovered/Resolved]
  - Vomiting [Recovered/Resolved]
  - Product taste abnormal [Not Recovered/Not Resolved]

NARRATIVE: CASE EVENT DATE: 20190125
